FAERS Safety Report 9751848 (Version 1)
Quarter: 2013Q4

REPORT INFORMATION
  Report Type: Spontaneous
  Country: US (occurrence: US)
  Receive Date: 20131213
  Receipt Date: 20131213
  Transmission Date: 20140711
  Serious: No
  Sender: FDA-Public Use
  Company Number: US-BIOGENIDEC-2013BI040352

PATIENT
  Sex: Female

DRUGS (3)
  1. AVONEX [Suspect]
     Indication: RELAPSING-REMITTING MULTIPLE SCLEROSIS
     Route: 030
  2. AVONEX [Suspect]
     Indication: RELAPSING-REMITTING MULTIPLE SCLEROSIS
     Route: 030
     Dates: start: 20130418
  3. AVONEX [Suspect]
     Indication: RELAPSING-REMITTING MULTIPLE SCLEROSIS
     Route: 030

REACTIONS (8)
  - Memory impairment [Unknown]
  - Tremor [Unknown]
  - Hypoaesthesia [Unknown]
  - Influenza like illness [Recovered/Resolved]
  - Fatigue [Unknown]
  - Myalgia [Unknown]
  - Injection site pain [Recovered/Resolved]
  - Injection site reaction [Unknown]
